FAERS Safety Report 20348873 (Version 1)
Quarter: 2022Q1

REPORT INFORMATION
  Report Type: Spontaneous
  Country: IR (occurrence: IR)
  Receive Date: 20220119
  Receipt Date: 20220119
  Transmission Date: 20220423
  Serious: Yes (Death, Hospitalization, Other)
  Sender: FDA-Public Use
  Company Number: IR-SUN PHARMACEUTICAL INDUSTRIES LTD-2022RR-324240

PATIENT
  Age: 40 Day
  Sex: Male

DRUGS (3)
  1. OCTREOTIDE [Suspect]
     Active Substance: OCTREOTIDE
     Indication: Ascites
     Dosage: 1 MICROGRAM/KILOGRAM, 1DOSE/1HOUR
     Route: 042
  2. OCTREOTIDE [Suspect]
     Active Substance: OCTREOTIDE
     Dosage: 2 MICROGRAM/KILOGRAM, 1DOSE/1HOUR
     Route: 042
  3. EPINEPHRINE [Suspect]
     Active Substance: EPINEPHRINE
     Indication: Bradycardia
     Dosage: UNK
     Route: 065

REACTIONS (2)
  - Necrotising colitis [Fatal]
  - Drug ineffective [Fatal]
